FAERS Safety Report 5449041-6 (Version None)
Quarter: 2007Q3

REPORT INFORMATION
  Report Type: 
  Country: None (occurrence: None)
  Receive Date: 20070911
  Receipt Date: 20070907
  Transmission Date: 20080115
  Serious: Yes (Death, Other)
  Sender: FDA-Public Use
  Company Number: JP-BRISTOL-MYERS SQUIBB COMPANY-13798731

PATIENT
  Age: 49 Year
  Sex: Male

DRUGS (7)
  1. BARACLUDE [Suspect]
     Indication: HEPATITIS B
     Route: 048
     Dates: start: 20070522, end: 20070613
  2. LASIX [Concomitant]
     Dosage: 10 MG: X1/D 18-MAY-2007 TO 25-MAY-2007 ORAL; 20 MG X1/D 26-MAY-2007 TO 13-MAY-2007 ORAL.
     Route: 042
     Dates: start: 20070520, end: 20070530
  3. ALDACTONE [Concomitant]
     Dosage: ALDACTONE- 50 MG X1/DAY 26-MAY-2007 TO 13-JUN-2007.
     Route: 048
     Dates: start: 20070518, end: 20070525
  4. LIVACT [Concomitant]
     Route: 048
     Dates: start: 20070518, end: 20070613
  5. NEO-MINOPHAGEN C [Concomitant]
     Route: 042
     Dates: start: 20070519, end: 20070613
  6. FESIN [Concomitant]
     Route: 042
     Dates: start: 20070518, end: 20070528
  7. CISPLATIN [Concomitant]
     Route: 013
     Dates: start: 20070531, end: 20070531

REACTIONS (3)
  - ABDOMINAL PAIN [None]
  - HEPATIC NEOPLASM MALIGNANT [None]
  - WHITE BLOOD CELL COUNT DECREASED [None]
